FAERS Safety Report 8595108-3 (Version None)
Quarter: 2012Q3

REPORT INFORMATION
  Report Type: 
  Country: None (occurrence: None)
  Receive Date: 20120807
  Receipt Date: 20120807
  Transmission Date: 20120928
  Serious: No
  Sender: FDA-Public Use
  Company Number: None

PATIENT
  Age: 67 Year
  Sex: Female
  Weight: 54.4316 kg

DRUGS (1)
  1. EVISTA [Suspect]
     Indication: OSTEOPOROSIS
     Dosage: 1 PILL PER DAY 1 TIMES A DAY ORALLY
     Route: 048
     Dates: start: 20100601, end: 20100901

REACTIONS (2)
  - VENOUS THROMBOSIS [None]
  - THROMBOPHLEBITIS SUPERFICIAL [None]
